FAERS Safety Report 17146483 (Version 1)
Quarter: 2019Q4

REPORT INFORMATION
  Report Type: Spontaneous
  Country: JP (occurrence: JP)
  Receive Date: 20191212
  Receipt Date: 20191212
  Transmission Date: 20200122
  Serious: Yes (Death, Other)
  Sender: FDA-Public Use
  Company Number: JP-ASTELLAS-2019US049189

PATIENT
  Age: 80 Year

DRUGS (1)
  1. AMBISOME [Suspect]
     Active Substance: AMPHOTERICIN B
     Indication: ASPERGILLUS INFECTION
     Dosage: 50 MG, UNKNOWN FREQ. (DAILY DOSE)
     Route: 041

REACTIONS (2)
  - Aspergillus infection [Fatal]
  - Chills [Unknown]
